FAERS Safety Report 8313677-5 (Version None)
Quarter: 2012Q2

REPORT INFORMATION
  Report Type: 
  Country: None (occurrence: None)
  Receive Date: 20120426
  Receipt Date: 20120418
  Transmission Date: 20120825
  Serious: Yes (Death, Other)
  Sender: FDA-Public Use
  Company Number: US-ELI_LILLY_AND_COMPANY-US201204006315

PATIENT
  Sex: Female

DRUGS (6)
  1. ALIMTA [Suspect]
     Dosage: UNK, UNKNOWN
  2. CARBOPLATIN [Concomitant]
  3. DOCETAXEL [Concomitant]
  4. PALONOSETRON [Concomitant]
  5. DEXAMETHASONE [Concomitant]
  6. VINORELBINE [Concomitant]

REACTIONS (6)
  - DEATH [None]
  - DIARRHOEA [None]
  - FATIGUE [None]
  - ASTHENIA [None]
  - HOSPICE CARE [None]
  - WEIGHT DECREASED [None]
